FAERS Safety Report 9262358 (Version 2)
Quarter: 2013Q2

REPORT INFORMATION
  Report Type: Spontaneous
  Country: PH (occurrence: PH)
  Receive Date: 20130430
  Receipt Date: 20130508
  Transmission Date: 20140414
  Serious: Yes (Death, Other)
  Sender: FDA-Public Use
  Company Number: PH-009507513-1304PHL017214

PATIENT
  Age: 75 Year
  Sex: Female

DRUGS (1)
  1. JANUVIA [Suspect]
     Dosage: ONE TABLET (50 MG) ONCE A DAY
     Dates: end: 201211

REACTIONS (1)
  - Neoplasm malignant [Fatal]
